FAERS Safety Report 7384421-3 (Version None)
Quarter: 2011Q1

REPORT INFORMATION
  Report Type: 
  Country: None (occurrence: None)
  Receive Date: 20110330
  Receipt Date: 20110321
  Transmission Date: 20110831
  Serious: Yes (Death, Hospitalization, Other)
  Sender: FDA-Public Use
  Company Number: PL-ACTELION-A-CH2011-46564

PATIENT
  Sex: Male
  Weight: 14.5 kg

DRUGS (4)
  1. SPIRONOLACTONE [Concomitant]
  2. LEVOTHYROXINE SODIUM [Concomitant]
  3. TRACLEER [Suspect]
     Dosage: 10 MG, BID
     Route: 048
     Dates: start: 20100629, end: 20100728
  4. TRACLEER [Suspect]
     Indication: PULMONARY ARTERIAL HYPERTENSION
     Dosage: 25 MG, BID
     Route: 048
     Dates: start: 20100729, end: 20110318

REACTIONS (6)
  - MUSCULOSKELETAL STIFFNESS [None]
  - RESPIRATORY FAILURE [None]
  - TONIC CONVULSION [None]
  - APNOEA [None]
  - CYANOSIS [None]
  - HYPOTONIA [None]
